FAERS Safety Report 5030337-7 (Version None)
Quarter: 2006Q2

REPORT INFORMATION
  Report Type: 
  Country: None (occurrence: None)
  Receive Date: 20060614
  Receipt Date: 20060524
  Transmission Date: 20061013
  Serious: Yes (Hospitalization, Other)
  Sender: FDA-Public Use
  Company Number: US200605006629

PATIENT
  Age: 72 Year
  Sex: Female

DRUGS (3)
  1. HUMALOG [Suspect]
     Indication: DIABETES MELLITUS
     Dosage: AS NEEDED
  2. HUMULIN U [Suspect]
     Indication: DIABETES MELLITUS
     Dates: end: 20060101
  3. LANTUS [Concomitant]

REACTIONS (9)
  - BLOOD GLUCOSE INCREASED [None]
  - BRONCHIAL CARCINOMA [None]
  - CHRONIC OBSTRUCTIVE PULMONARY DISEASE [None]
  - DISORIENTATION [None]
  - PHARMACEUTICAL PRODUCT COMPLAINT [None]
  - PNEUMONIA [None]
  - SEPSIS [None]
  - STAPHYLOCOCCAL INFECTION [None]
  - URINARY TRACT INFECTION [None]
